FAERS Safety Report 9373428 (Version 1)
Quarter: 2013Q2

REPORT INFORMATION
  Report Type: Other
  Country: FR (occurrence: FR)
  Receive Date: 20130627
  Receipt Date: 20130627
  Transmission Date: 20140414
  Serious: Yes (Other)
  Sender: FDA-Public Use
  Company Number: FR-ACTELION-A-CH2013-84783

PATIENT
  Age: 32 Year
  Sex: Female

DRUGS (2)
  1. TRACLEER [Suspect]
     Indication: PULMONARY ARTERIAL HYPERTENSION
     Route: 048
  2. ILOPROST [Concomitant]

REACTIONS (5)
  - Mastocytosis [Unknown]
  - Rash pruritic [Unknown]
  - Rash macular [Unknown]
  - Urticaria pigmentosa [Unknown]
  - Disability [Unknown]
